FAERS Safety Report 4606042-5 (Version None)
Quarter: 2005Q1

REPORT INFORMATION
  Report Type: 
  Country: None (occurrence: None)
  Receive Date: 20050311
  Receipt Date: 20050222
  Transmission Date: 20050727
  Serious: Yes (Death, Hospitalization)
  Sender: FDA-Public Use
  Company Number: CA-ROCHE-396357

PATIENT
  Age: 79 Year
  Sex: Female
  Weight: 44.6 kg

DRUGS (3)
  1. CAPECITABINE [Suspect]
     Route: 048
     Dates: start: 20040609, end: 20041122
  2. MULTI-VITAMIN [Concomitant]
  3. ARICEPT [Concomitant]

REACTIONS (7)
  - CARDIAC ARREST [None]
  - HAEMODYNAMIC INSTABILITY [None]
  - HERNIA [None]
  - INTESTINAL OBSTRUCTION [None]
  - POST PROCEDURAL COMPLICATION [None]
  - SEPSIS [None]
  - SMALL INTESTINAL PERFORATION [None]
